FAERS Safety Report 16484381 (Version 1)
Quarter: 2019Q2

REPORT INFORMATION
  Report Type: Spontaneous
  Country: FR (occurrence: FR)
  Receive Date: 20190627
  Receipt Date: 20190627
  Transmission Date: 20190711
  Serious: Yes (Life-Threatening, Hospitalization)
  Sender: FDA-Public Use
  Company Number: FR-MYLANLABS-2019M1059871

PATIENT
  Age: 46 Year
  Sex: Male
  Weight: 89 kg

DRUGS (1)
  1. GEMCITABINE [Suspect]
     Active Substance: GEMCITABINE\GEMCITABINE HYDROCHLORIDE
     Indication: PANCREATIC CARCINOMA
     Dosage: 800 MILLIGRAM/KILOGRAM
     Route: 041
     Dates: start: 20180525, end: 20181106

REACTIONS (5)
  - Congestive cardiomyopathy [Recovering/Resolving]
  - Generalised oedema [Recovering/Resolving]
  - Acute pulmonary oedema [Recovering/Resolving]
  - Cardiac failure [Recovering/Resolving]
  - Pleural effusion [Recovering/Resolving]

NARRATIVE: CASE EVENT DATE: 201809
